FAERS Safety Report 9066171 (Version 1)
Quarter: 2013Q1

REPORT INFORMATION
  Report Type: Report from Study
  Country: US (occurrence: US)
  Receive Date: 20130131
  Receipt Date: 20130131
  Transmission Date: 20140127
  Serious: No
  Sender: FDA-Public Use
  Company Number: US-ABBOTT-12P-163-1009098-00

PATIENT
  Age: 58 Year
  Sex: Female

DRUGS (7)
  1. HUMIRA [Suspect]
     Indication: PSORIASIS
     Dates: start: 201208
  2. ZOLOFT [Concomitant]
     Indication: MENOPAUSE
     Route: 048
  3. COZAAR [Concomitant]
     Indication: BLOOD PRESSURE
     Route: 048
  4. ASA [Concomitant]
     Indication: ANTICOAGULANT THERAPY
     Route: 048
  5. FISH OIL [Concomitant]
     Indication: ROUTINE HEALTH MAINTENANCE
     Route: 048
  6. CALTRATE [Concomitant]
     Indication: BONE DISORDER
     Dosage: 1200-1600MG DAILY
     Route: 048
  7. PEPCID [Concomitant]
     Indication: GASTROOESOPHAGEAL REFLUX DISEASE
     Route: 048

REACTIONS (1)
  - Fatigue [Not Recovered/Not Resolved]
